FAERS Safety Report 11969343 (Version 2)
Quarter: 2018Q1

REPORT INFORMATION
  Report Type: Report from Study
  Country: US (occurrence: US)
  Receive Date: 20160128
  Receipt Date: 20180301
  Transmission Date: 20180508
  Serious: Yes (Hospitalization, Other)
  Sender: FDA-Public Use
  Company Number: US-UCBSA-2016002135

PATIENT
  Age: 0 Year
  Sex: Female
  Weight: 1.81 kg

DRUGS (2)
  1. CERTOLIZUMAB PEGOL [Suspect]
     Active Substance: CERTOLIZUMAB PEGOL
     Indication: CROHN^S DISEASE
     Dosage: 400 MG, EV 4 WEEKS
     Route: 064
     Dates: start: 20150819, end: 2015
  2. CERTOLIZUMAB PEGOL [Suspect]
     Active Substance: CERTOLIZUMAB PEGOL
     Dosage: UNK
     Route: 063

REACTIONS (4)
  - Foetal exposure during pregnancy [Unknown]
  - Premature baby [Unknown]
  - Exposure via breast milk [Unknown]
  - Foetal distress syndrome [Unknown]

NARRATIVE: CASE EVENT DATE: 2015
